FAERS Safety Report 8983084 (Version 2)
Quarter: 2013Q1

REPORT INFORMATION
  Report Type: Spontaneous
  Country: NO (occurrence: NO)
  Receive Date: 20121223
  Receipt Date: 20130131
  Transmission Date: 20140127
  Serious: Yes (Life-Threatening, Hospitalization)
  Sender: FDA-Public Use
  Company Number: PHHY2012NO117651

PATIENT
  Age: 67 None
  Sex: Male

DRUGS (8)
  1. EBETREXAT [Suspect]
     Indication: RHEUMATOID ARTHRITIS
     Dosage: 20 MG, QW
     Route: 058
     Dates: start: 20110512, end: 201109
  2. FOLSYRE NAF [Concomitant]
     Dosage: 1 MG, UNK
     Route: 048
  3. SELO-ZOK [Concomitant]
     Dosage: 100 MG, UNK
     Route: 048
  4. ZOPICLONE [Concomitant]
     Dosage: 5 MG, UNK
     Route: 048
  5. ALBYL-E [Concomitant]
     Dosage: 75 MG, UNK
     Route: 048
  6. SIMVASTATIN [Concomitant]
     Dosage: 20 MG, UNK
     Route: 048
  7. REMERON [Concomitant]
     Route: 048
  8. REMERON [Concomitant]
     Route: 048

REACTIONS (8)
  - Sepsis [Recovered/Resolved with Sequelae]
  - Extradural abscess [Recovered/Resolved with Sequelae]
  - Staphylococcal infection [Recovered/Resolved with Sequelae]
  - Pyrexia [Recovered/Resolved with Sequelae]
  - Multi-organ failure [Recovered/Resolved with Sequelae]
  - Rhabdomyolysis [Recovered/Resolved with Sequelae]
  - Acute respiratory distress syndrome [Recovered/Resolved with Sequelae]
  - Renal failure [Recovered/Resolved with Sequelae]
